FAERS Safety Report 9386077 (Version 1)
Quarter: 2013Q3

REPORT INFORMATION
  Report Type: Spontaneous
  Country: FR (occurrence: FR)
  Receive Date: 20130706
  Receipt Date: 20130706
  Transmission Date: 20140515
  Serious: Yes (Hospitalization)
  Sender: FDA-Public Use
  Company Number: FR-ABBOTT-13X-056-1113720-00

PATIENT
  Age: 56 Year
  Sex: Male
  Weight: 60 kg

DRUGS (5)
  1. ZECLAR [Suspect]
     Indication: HELICOBACTER INFECTION
     Route: 048
  2. ZINNAT [Suspect]
     Indication: HELICOBACTER INFECTION
     Route: 048
     Dates: start: 20121214, end: 20121215
  3. PLAQUENIL [Suspect]
     Indication: PRODUCT USED FOR UNKNOWN INDICATION
     Route: 048
     Dates: start: 20121205, end: 20121205
  4. AMOXICILLINE [Concomitant]
     Indication: TOOTH ABSCESS
     Route: 048
  5. METRONIDAZOLE [Concomitant]
     Indication: TOOTH ABSCESS
     Route: 048

REACTIONS (7)
  - Drug dispensing error [Unknown]
  - Rash maculo-papular [Unknown]
  - Skin exfoliation [Unknown]
  - Condition aggravated [Unknown]
  - Pyrexia [Unknown]
  - Dermatitis exfoliative [Unknown]
  - Skin exfoliation [Unknown]
